FAERS Safety Report 20797016 (Version 3)
Quarter: 2023Q1

REPORT INFORMATION
  Report Type: Spontaneous
  Country: ES (occurrence: ES)
  Receive Date: 20220506
  Receipt Date: 20230202
  Transmission Date: 20230417
  Serious: Yes (Hospitalization, Other)
  Sender: FDA-Public Use
  Company Number: ES-NOVARTISPH-NVSC2022ES103277

PATIENT
  Sex: Male

DRUGS (10)
  1. QUETIAPINE [Interacting]
     Active Substance: QUETIAPINE
     Indication: Abnormal behaviour
     Dosage: 100 MG PER DAY
     Route: 065
     Dates: start: 201604, end: 201606
  2. QUETIAPINE [Interacting]
     Active Substance: QUETIAPINE
     Indication: Schizoaffective disorder
  3. LORMETAZEPAM [Suspect]
     Active Substance: LORMETAZEPAM
     Indication: Abnormal behaviour
     Dosage: UNK
     Route: 065
     Dates: start: 20160425, end: 20160613
  4. LORMETAZEPAM [Suspect]
     Active Substance: LORMETAZEPAM
     Indication: Schizoaffective disorder
  5. AMISULPRIDE [Suspect]
     Active Substance: AMISULPRIDE
     Indication: Abnormal behaviour
     Dosage: 800 MG, QD
     Route: 065
     Dates: start: 201512, end: 201604
  6. AMISULPRIDE [Suspect]
     Active Substance: AMISULPRIDE
     Indication: Schizoaffective disorder
     Dosage: 600 MG, QD
     Route: 065
     Dates: start: 201604, end: 201606
  7. LORAZEPAM [Suspect]
     Active Substance: LORAZEPAM
     Indication: Abnormal behaviour
     Dosage: UNK
     Route: 065
     Dates: start: 20160425, end: 20161004
  8. LORAZEPAM [Suspect]
     Active Substance: LORAZEPAM
     Indication: Schizoaffective disorder
  9. FLUOXETINE [Interacting]
     Active Substance: FLUOXETINE HYDROCHLORIDE
     Indication: Abnormal behaviour
     Dosage: 20 MG, PER DAY
     Route: 065
     Dates: start: 201604, end: 201606
  10. FLUOXETINE [Interacting]
     Active Substance: FLUOXETINE HYDROCHLORIDE
     Indication: Schizoaffective disorder

REACTIONS (5)
  - Deep vein thrombosis [Recovered/Resolved]
  - Gastrointestinal haemorrhage [Recovered/Resolved]
  - Drug level increased [Unknown]
  - Drug interaction [Unknown]
  - Product use in unapproved indication [Unknown]

NARRATIVE: CASE EVENT DATE: 20160401
